FAERS Safety Report 9052544 (Version 1)
Quarter: 2013Q1

REPORT INFORMATION
  Report Type: Spontaneous
  Country: CA (occurrence: CA)
  Receive Date: 20130207
  Receipt Date: 20130207
  Transmission Date: 20140127
  Serious: Yes (Other)
  Sender: FDA-Public Use
  Company Number: PHHY2013CA011453

PATIENT
  Sex: Male

DRUGS (15)
  1. TASIGNA [Suspect]
     Indication: CHRONIC MYELOID LEUKAEMIA
     Dosage: 400 MG, BID
     Route: 048
     Dates: start: 200910
  2. VITAMIN C [Concomitant]
  3. VITAMIN B12 [Concomitant]
  4. VITAMIN B6 [Concomitant]
  5. VITAMIN D [Concomitant]
  6. VITAMIIN A [Concomitant]
  7. VITAMIN E [Concomitant]
  8. OMEGA 3 [Concomitant]
  9. GINKGO BILOBA [Concomitant]
  10. CO-ENZYME Q10 [Concomitant]
  11. FOLIC ACID [Concomitant]
  12. MAGNESIUM [Concomitant]
  13. GARLIC [Concomitant]
  14. VITAMIN B5//CALCIUM PANTOTHENATE [Concomitant]
  15. DHA [Concomitant]

REACTIONS (3)
  - Cardiac disorder [Recovering/Resolving]
  - Wound [Recovering/Resolving]
  - Hyperkeratosis [Recovering/Resolving]
